FAERS Safety Report 15583541 (Version 1)
Quarter: 2018Q4

REPORT INFORMATION
  Report Type: Spontaneous
  Country: US (occurrence: US)
  Receive Date: 20181105
  Receipt Date: 20181105
  Transmission Date: 20190205
  Serious: Yes (Other)
  Sender: FDA-Public Use
  Company Number: US-ACCORD-070105

PATIENT
  Sex: Female

DRUGS (11)
  1. ACETYLSALICYLIC ACID [Concomitant]
     Active Substance: ASPIRIN
  2. FLUTICASONE. [Concomitant]
     Active Substance: FLUTICASONE
     Indication: HYPERSENSITIVITY
  3. LORATADINE. [Concomitant]
     Active Substance: LORATADINE
     Indication: HYPERSENSITIVITY
  4. DIPHENHYDRAMINE. [Concomitant]
     Active Substance: DIPHENHYDRAMINE
     Indication: PRURITUS
  5. ERGOCALCIFEROL. [Concomitant]
     Active Substance: ERGOCALCIFEROL
  6. CALCIUM CITRATE [Concomitant]
     Active Substance: CALCIUM CITRATE
  7. ESCITALOPRAM [Suspect]
     Active Substance: ESCITALOPRAM OXALATE
     Indication: DEPRESSION
  8. ATORVASTATIN [Concomitant]
     Active Substance: ATORVASTATIN
     Indication: BLOOD CHOLESTEROL
  9. NICOTINAMIDE/PYRIDOXINE HYDROCHLORIDE/RIBOFLAVIN/THIAMINE HYDROCHLORIDE [Concomitant]
  10. LEVOTHYROXINE. [Concomitant]
     Active Substance: LEVOTHYROXINE
     Indication: THYROID DISORDER
  11. WALMART MIRALAX [Concomitant]

REACTIONS (2)
  - Hypersensitivity [Unknown]
  - Rash pruritic [Unknown]
